FAERS Safety Report 5727289-0 (Version None)
Quarter: 2008Q2

REPORT INFORMATION
  Report Type: 
  Country: None (occurrence: None)
  Receive Date: 20080430
  Receipt Date: 20080421
  Transmission Date: 20081010
  Serious: Yes (Other)
  Sender: FDA-Public Use
  Company Number: GXKR2008ES03888

PATIENT
  Age: 3 Year
  Sex: Male

DRUGS (1)
  1. CLARITHROMYCIN SANDOZ (NGX)(CLARITHROMYCIN) GRANULATE FOR ORAL SUSPENS [Suspect]
     Indication: TONSILLITIS
     Dosage: 4 ML BID, ORAL
     Route: 048
     Dates: start: 20080215

REACTIONS (3)
  - AGGRESSION [None]
  - IRRITABILITY [None]
  - PSYCHOMOTOR HYPERACTIVITY [None]
